FAERS Safety Report 16230016 (Version 1)
Quarter: 2019Q2

REPORT INFORMATION
  Report Type: Spontaneous
  Country: US (occurrence: US)
  Receive Date: 20190423
  Receipt Date: 20190423
  Transmission Date: 20190711
  Serious: No
  Sender: FDA-Public Use
  Company Number: US-AMNEAL PHARMACEUTICALS-2019AMN00402

PATIENT
  Sex: Female
  Weight: 122.47 kg

DRUGS (1)
  1. AMPHETAMINE SULFATE. [Suspect]
     Active Substance: AMPHETAMINE SULFATE
     Indication: WEIGHT DECREASED
     Dosage: UNK
     Route: 065

REACTIONS (2)
  - Agitation [Unknown]
  - Migraine [Unknown]
